FAERS Safety Report 9869580 (Version 1)
Quarter: 2014Q1

REPORT INFORMATION
  Report Type: Spontaneous
  Country: US (occurrence: None)
  Receive Date: 20140203
  Receipt Date: 20140203
  Transmission Date: 20141002
  Serious: No
  Sender: FDA-Public Use
  Company Number: None

PATIENT
  Sex: Female
  Weight: 88.45 kg

DRUGS (3)
  1. RABEPRAZOLE [Suspect]
     Indication: ULCER
     Route: 048
     Dates: start: 20140116, end: 20140127
  2. RABEPRAZOLE [Suspect]
     Indication: GASTRITIS
     Route: 048
     Dates: start: 20140116, end: 20140127
  3. RABEPRAZOLE [Suspect]
     Indication: GASTROOESOPHAGEAL REFLUX DISEASE
     Route: 048
     Dates: start: 20140116, end: 20140127

REACTIONS (5)
  - Gastritis [None]
  - Gastrooesophageal reflux disease [None]
  - Disease recurrence [None]
  - Dyspepsia [None]
  - Product substitution issue [None]
